FAERS Safety Report 10229707 (Version 1)
Quarter: 2014Q2

REPORT INFORMATION
  Report Type: Report from Study
  Country: US (occurrence: US)
  Receive Date: 20140611
  Receipt Date: 20140611
  Transmission Date: 20141212
  Serious: Yes (Other)
  Sender: FDA-Public Use
  Company Number: PHEH2014US011572

PATIENT
  Sex: Female

DRUGS (2)
  1. TOBI [Suspect]
     Dosage: 28 DAYS ON AND 28 DAYS OFF
     Route: 055
  2. TOBI [Suspect]
     Dosage: 14 DAYS ON AND OFF

REACTIONS (1)
  - Fungal infection [Unknown]
